FAERS Safety Report 4466307-7 (Version None)
Quarter: 2004Q4

REPORT INFORMATION
  Report Type: 
  Country: None (occurrence: None)
  Receive Date: 20041005
  Receipt Date: 20040924
  Transmission Date: 20050328
  Serious: Yes (Hospitalization, Other)
  Sender: FDA-Public Use
  Company Number: PHBS2004CH12697

PATIENT
  Age: 42 Year
  Sex: Male

DRUGS (13)
  1. SANDIMMUNE [Suspect]
     Indication: RENAL TRANSPLANT
     Dosage: 150 MG/DAY
     Route: 048
  2. FLUOXETINE [Suspect]
     Dosage: 20 MG/DAY
     Route: 048
  3. RENITEN [Suspect]
     Dosage: 20 MG/DAY
     Route: 048
  4. TENORMIN [Suspect]
     Dosage: 50 MG/DAY
     Route: 048
  5. AMOXICILLIN [Suspect]
     Dosage: 2 G/DAY
     Route: 048
     Dates: start: 20030701, end: 20030701
  6. CLARITHROMYCIN [Suspect]
     Dosage: 1 G/DAY
     Route: 048
     Dates: start: 20030701, end: 20030701
  7. NORVASC [Concomitant]
     Dosage: 10 MG/DAY
     Route: 048
  8. MADOPAR [Concomitant]
     Dosage: 200 + 50 MG/DAY
     Route: 048
  9. PREDNISONE [Concomitant]
     Dosage: 7.5 MG/DAY
     Route: 048
  10. RIVOTRIL [Concomitant]
     Dosage: 1 DF, QD
     Route: 048
     Dates: start: 20040401
  11. CALCIMAGON-D3 [Concomitant]
     Dates: start: 20040401
  12. SIFROL [Concomitant]
     Dosage: 0.125 MG/DAY
     Dates: start: 20040430, end: 20040607
  13. ZYLORIC [Suspect]

REACTIONS (11)
  - ANAEMIA [None]
  - CHOLECYSTECTOMY [None]
  - CHOLELITHIASIS [None]
  - DISEASE RECURRENCE [None]
  - GLOMERULONEPHRITIS PROLIFERATIVE [None]
  - HAEMATURIA [None]
  - HEPATITIS B [None]
  - HEPATITIS CHOLESTATIC [None]
  - HYPERPARATHYROIDISM SECONDARY [None]
  - HYPERTENSION [None]
  - HYPERURICAEMIA [None]
